FAERS Safety Report 8815151 (Version 2)
Quarter: 2014Q1

REPORT INFORMATION
  Report Type: Report from Study
  Country: US (occurrence: US)
  Receive Date: 20120928
  Receipt Date: 20140122
  Transmission Date: 20141002
  Serious: Yes (Hospitalization)
  Sender: FDA-Public Use
  Company Number: US-ELI_LILLY_AND_COMPANY-US201201002040

PATIENT
  Age: 69 Year
  Sex: Female

DRUGS (6)
  1. TERIPARATIDE [Suspect]
     Indication: OSTEOPOROSIS
     Dosage: 20 UG, QD
     Route: 065
     Dates: start: 20111211
  2. TERIPARATIDE [Suspect]
     Indication: SENILE OSTEOPOROSIS
     Dosage: 20 UG, QD
     Route: 065
     Dates: start: 20120104
  3. TERIPARATIDE [Suspect]
     Dosage: 20 UG, QD
     Route: 065
  4. TERIPARATIDE [Suspect]
     Dosage: 20 UG, QD
     Route: 065
     Dates: end: 20131210
  5. PREDNISONE [Suspect]
     Indication: CHRONIC OBSTRUCTIVE PULMONARY DISEASE
     Route: 065
  6. OLANZAPINE [Concomitant]
     Indication: ADVERSE DRUG REACTION
     Dosage: 5 MG, UNKNOWN
     Route: 065
     Dates: start: 20140115

REACTIONS (12)
  - Chronic obstructive pulmonary disease [Recovering/Resolving]
  - Bronchitis [Unknown]
  - Chronic obstructive pulmonary disease [Unknown]
  - Osteoporosis [Unknown]
  - Hypersomnia [Unknown]
  - Fatigue [Unknown]
  - Hair growth abnormal [Not Recovered/Not Resolved]
  - Injection site pain [Unknown]
  - Blood calcium increased [Unknown]
  - Nail growth abnormal [Not Recovered/Not Resolved]
  - Confusional state [Unknown]
  - Psychomotor hyperactivity [Unknown]
